FAERS Safety Report 7910161-5 (Version None)
Quarter: 2011Q4

REPORT INFORMATION
  Report Type: 
  Country: None (occurrence: None)
  Receive Date: 20111111
  Receipt Date: 20111101
  Transmission Date: 20120403
  Serious: Yes (Death, Life-Threatening)
  Sender: FDA-Public Use
  Company Number: JP-B.I. PHARMACEUTICALS,INC./RIDGEFIELD-2011-BP-23151NB

PATIENT
  Sex: Female
  Weight: 30.5 kg

DRUGS (11)
  1. ASPIRIN [Concomitant]
     Indication: ACUTE CORONARY SYNDROME
     Dosage: 100 MG
     Route: 065
     Dates: start: 20050201, end: 20110525
  2. SIGMART [Concomitant]
     Indication: ACUTE CORONARY SYNDROME
     Dosage: 10 MG
     Route: 065
     Dates: start: 20050201
  3. FRANDOL S [Concomitant]
     Indication: ACUTE CORONARY SYNDROME
     Dosage: 40 MG
     Route: 065
     Dates: start: 20050201
  4. DILTIAZEM HCL [Concomitant]
     Indication: HYPERTENSION
     Dosage: 60 MG
     Route: 065
     Dates: start: 20050201
  5. DIART [Concomitant]
     Indication: CARDIAC FAILURE
     Dosage: 30 MG
     Route: 065
     Dates: start: 20050201
  6. CLARITHROMYCIN [Concomitant]
     Indication: BRONCHITIS CHRONIC
     Dosage: 200 MG
     Route: 048
  7. FERROUS CITRATE [Concomitant]
     Indication: ANAEMIA
     Dosage: 50 MG
     Route: 048
     Dates: start: 20100526
  8. PRADAXA [Suspect]
     Indication: ATRIAL FIBRILLATION
     Dosage: 150 MG
     Route: 048
     Dates: start: 20110427, end: 20110525
  9. GRAMALIL [Concomitant]
     Indication: AGITATION
     Dosage: 25 MG
     Route: 048
  10. ZANTAC [Concomitant]
     Indication: GASTRITIS
     Dosage: 300 MG
     Route: 065
     Dates: start: 20050201
  11. MICARDIS [Concomitant]
     Indication: HYPERTENSION
     Dosage: 20 MG
     Route: 065
     Dates: start: 20050201

REACTIONS (3)
  - HAEMORRHAGE [None]
  - MELAENA [None]
  - GASTROINTESTINAL HAEMORRHAGE [None]
